FAERS Safety Report 9891615 (Version 2)
Quarter: 2014Q1

REPORT INFORMATION
  Report Type: Spontaneous
  Country: US (occurrence: US)
  Receive Date: 20140212
  Receipt Date: 20140212
  Transmission Date: 20141002
  Serious: Yes (Other)
  Sender: FDA-Public Use
  Company Number: US-PFIZER INC-2013373910

PATIENT
  Age: 62 Year
  Sex: Male
  Weight: 113.38 kg

DRUGS (1)
  1. VIAGRA [Suspect]
     Indication: ERECTILE DYSFUNCTION
     Dosage: 100 MG, EVERY 3 TO 4 DAYS
     Route: 048
     Dates: start: 2010

REACTIONS (1)
  - Neoplasm malignant [Recovered/Resolved]
